FAERS Safety Report 12209868 (Version 1)
Quarter: 2016Q1

REPORT INFORMATION
  Report Type: Spontaneous
  Country: CZ (occurrence: CZ)
  Receive Date: 20160325
  Receipt Date: 20160325
  Transmission Date: 20160526
  Serious: Yes (Hospitalization)
  Sender: FDA-Public Use
  Company Number: CZ-CIPLA LTD.-2016CZ02667

PATIENT

DRUGS (6)
  1. HYDROCHLOROTHIAZIDE. [Suspect]
     Active Substance: HYDROCHLOROTHIAZIDE
     Dosage: 12.5 MG/DAY
     Route: 065
  2. CETIRIZINE [Suspect]
     Active Substance: CETIRIZINE HYDROCHLORIDE
     Dosage: 10 MG/DAY
     Route: 065
  3. MOXONIDINE [Suspect]
     Active Substance: MOXONIDINE
     Dosage: 0.3 MG/DAY
     Route: 065
  4. ALLOPURINOL. [Suspect]
     Active Substance: ALLOPURINOL
     Indication: HYPERURICAEMIA
     Dosage: 100 MG/DAY
     Route: 065
  5. TELMISARTAN. [Suspect]
     Active Substance: TELMISARTAN
     Dosage: 80 MG/DAY
     Route: 065
  6. BETAXOLOL. [Suspect]
     Active Substance: BETAXOLOL
     Dosage: 20 MG/DAY
     Route: 065

REACTIONS (5)
  - Candida infection [Unknown]
  - Drug reaction with eosinophilia and systemic symptoms [Recovered/Resolved]
  - Cardiac hypertrophy [Unknown]
  - Staphylococcal sepsis [Unknown]
  - Urinary tract infection [Unknown]
